FAERS Safety Report 16467478 (Version 5)
Quarter: 2019Q3

REPORT INFORMATION
  Report Type: Spontaneous
  Country: US (occurrence: US)
  Receive Date: 20190624
  Receipt Date: 20190831
  Transmission Date: 20191004
  Serious: No
  Sender: FDA-Public Use
  Company Number: US-BIOGEN-2019BI00753899

PATIENT
  Age: 41 Year
  Sex: Male

DRUGS (1)
  1. AVONEX [Suspect]
     Active Substance: INTERFERON BETA-1A
     Indication: MULTIPLE SCLEROSIS
     Route: 065
     Dates: start: 20131209

REACTIONS (4)
  - Memory impairment [Not Recovered/Not Resolved]
  - Dysphemia [Unknown]
  - Dysgraphia [Unknown]
  - Stress [Unknown]

NARRATIVE: CASE EVENT DATE: 20190626
